FAERS Safety Report 17807717 (Version 2)
Quarter: 2020Q2

REPORT INFORMATION
  Report Type: Spontaneous
  Country: US (occurrence: US)
  Receive Date: 20200520
  Receipt Date: 20200602
  Transmission Date: 20200714
  Serious: Yes (Hospitalization, Other)
  Sender: FDA-Public Use
  Company Number: US-PFIZER INC-2019041930

PATIENT
  Age: 61 Year
  Sex: Female
  Weight: 68.04 kg

DRUGS (6)
  1. DILANTIN [Suspect]
     Active Substance: PHENYTOIN
     Dosage: 2 DF, DAILY
  2. DILANTIN [Suspect]
     Active Substance: PHENYTOIN
     Indication: TRIGEMINAL NEURALGIA
     Dosage: 300 MG, DAILY
     Route: 048
  3. DILANTIN [Suspect]
     Active Substance: PHENYTOIN
     Indication: SEIZURE
     Dosage: UNK, 1X/DAY
  4. KEPPRA [Concomitant]
     Active Substance: LEVETIRACETAM
     Indication: SEIZURE
     Dosage: 1500 MG, 2X/DAY (TWO IN THE MORNING AND TWO AT NIGHT.)
  5. DILANTIN [Suspect]
     Active Substance: PHENYTOIN
     Indication: FIBROMYALGIA
     Dosage: 100 MG, 3X/DAY (3 CAPSULES DAILY)
     Route: 048
  6. DILANTIN [Suspect]
     Active Substance: PHENYTOIN
     Dosage: 200 MG, 2X/DAY (2 IN THE MORNING AND 2 AT NIGHT BY MOUTH)
     Route: 048

REACTIONS (6)
  - Intentional product use issue [Unknown]
  - Expired product administered [Unknown]
  - Fall [Recovered/Resolved with Sequelae]
  - Drug ineffective [Recovering/Resolving]
  - Thinking abnormal [Recovering/Resolving]
  - Seizure [Recovering/Resolving]
